FAERS Safety Report 13054676 (Version 5)
Quarter: 2017Q2

REPORT INFORMATION
  Report Type: Spontaneous
  Country: CN (occurrence: CN)
  Receive Date: 20161222
  Receipt Date: 20170408
  Transmission Date: 20170830
  Serious: Yes (Hospitalization)
  Sender: FDA-Public Use
  Company Number: PHHY2016CN173514

PATIENT
  Age: 67 Year
  Sex: Female

DRUGS (2)
  1. ACLASTA [Suspect]
     Active Substance: ZOLEDRONIC ACID
     Indication: OSTEOPOROSIS
     Dosage: ONE BAG FOR 500 ML
     Route: 041
     Dates: start: 20161209
  2. NORVASC [Concomitant]
     Active Substance: AMLODIPINE BESYLATE
     Indication: HYPERTENSION
     Dosage: 5 MG, QD
     Route: 065

REACTIONS (40)
  - Speech disorder [Recovering/Resolving]
  - Dizziness [Recovering/Resolving]
  - Chronic gastritis [Recovering/Resolving]
  - Hypokalaemia [Recovering/Resolving]
  - Insomnia [Recovering/Resolving]
  - Nausea [Not Recovered/Not Resolved]
  - Loss of consciousness [Recovering/Resolving]
  - Muscular weakness [Recovering/Resolving]
  - Hyperplasia [Recovering/Resolving]
  - Vomiting [Recovering/Resolving]
  - Fall [Recovering/Resolving]
  - Movement disorder [Recovering/Resolving]
  - Neuropathy peripheral [Unknown]
  - Uterine leiomyoma [Recovering/Resolving]
  - Helicobacter infection [Recovering/Resolving]
  - Electrolyte imbalance [Recovering/Resolving]
  - Nephrolithiasis [Recovering/Resolving]
  - Hypertension [Recovering/Resolving]
  - Pain [Recovering/Resolving]
  - Oropharyngeal discomfort [Recovering/Resolving]
  - Chest discomfort [Recovering/Resolving]
  - Distributive shock [Unknown]
  - Asthenia [Recovering/Resolving]
  - Dyspnoea [Recovering/Resolving]
  - Lung infection [Recovering/Resolving]
  - Hyperlipidaemia [Unknown]
  - Hypomagnesaemia [Recovering/Resolving]
  - Hyponatraemia [Recovering/Resolving]
  - Fatigue [Unknown]
  - Guillain-Barre syndrome [Recovering/Resolving]
  - Dysphagia [Recovering/Resolving]
  - Spinal osteoarthritis [Recovering/Resolving]
  - Blood calcium decreased [Unknown]
  - Abdominal discomfort [Recovering/Resolving]
  - Hypoaesthesia [Recovering/Resolving]
  - Dysphonia [Unknown]
  - Abasia [Recovering/Resolving]
  - Respiratory failure [Unknown]
  - Gastrooesophageal reflux disease [Recovering/Resolving]
  - Balance disorder [Recovering/Resolving]

NARRATIVE: CASE EVENT DATE: 20161212
